FAERS Safety Report 19912372 (Version 1)
Quarter: 2021Q4

REPORT INFORMATION
  Report Type: Report from Study
  Country: US (occurrence: US)
  Receive Date: 20211004
  Receipt Date: 20211004
  Transmission Date: 20220303
  Serious: Yes (Hospitalization, Other)
  Sender: FDA-Public Use
  Company Number: US-MYLANLABS-2021M1068238

PATIENT
  Age: 11 Year
  Sex: Female

DRUGS (12)
  1. METHOTREXATE [Suspect]
     Active Substance: METHOTREXATE
     Indication: Psoriatic arthropathy
     Dosage: UNK
     Route: 065
  2. METHOTREXATE [Suspect]
     Active Substance: METHOTREXATE
     Indication: Juvenile idiopathic arthritis
  3. METHOTREXATE [Suspect]
     Active Substance: METHOTREXATE
     Indication: Immunosuppressant drug therapy
  4. ITRACONAZOLE [Interacting]
     Active Substance: ITRACONAZOLE
     Indication: Acute pulmonary histoplasmosis
     Dosage: UNK
     Route: 065
  5. ADALIMUMAB [Suspect]
     Active Substance: ADALIMUMAB
     Indication: Psoriatic arthropathy
     Dosage: UNK
     Route: 065
  6. ADALIMUMAB [Suspect]
     Active Substance: ADALIMUMAB
     Indication: Juvenile idiopathic arthritis
  7. ADALIMUMAB [Suspect]
     Active Substance: ADALIMUMAB
     Indication: Immunosuppressant drug therapy
  8. AMPHOTERICIN B [Concomitant]
     Active Substance: AMPHOTERICIN B
     Indication: Acute pulmonary histoplasmosis
     Dosage: UNK
     Route: 065
  9. HYDROXYCHLOROQUINE [Concomitant]
     Active Substance: HYDROXYCHLOROQUINE
     Indication: Psoriatic arthropathy
     Dosage: UNK
     Route: 065
  10. HYDROXYCHLOROQUINE [Concomitant]
     Active Substance: HYDROXYCHLOROQUINE
     Indication: Juvenile idiopathic arthritis
  11. ABATACEPT [Concomitant]
     Active Substance: ABATACEPT
     Indication: Psoriatic arthropathy
     Dosage: UNK
     Route: 065
  12. ABATACEPT [Concomitant]
     Active Substance: ABATACEPT
     Indication: Juvenile idiopathic arthritis

REACTIONS (3)
  - Acute pulmonary histoplasmosis [Recovered/Resolved]
  - Cushing^s syndrome [Unknown]
  - Drug interaction [Unknown]
